FAERS Safety Report 14740628 (Version 4)
Quarter: 2018Q2

REPORT INFORMATION
  Report Type: Report from Study
  Country: US (occurrence: US)
  Receive Date: 20180410
  Receipt Date: 20180612
  Transmission Date: 20180711
  Serious: Yes (Hospitalization)
  Sender: FDA-Public Use
  Company Number: US-PFIZER INC-2018087799

PATIENT
  Age: 67 Year
  Sex: Female

DRUGS (3)
  1. SUTENT [Suspect]
     Active Substance: SUNITINIB MALATE
     Dosage: 50 MG, CYCLIC (DAILY/2 WEEKS ON/1 WEEK OFF)
     Route: 048
     Dates: start: 20180212, end: 20180424
  2. SUTENT [Suspect]
     Active Substance: SUNITINIB MALATE
     Dosage: 37.5 MG, CYCLIC (DAILY/2 WEEKS ON/1 WEEK OFF)
     Route: 048
     Dates: start: 20180425, end: 2018
  3. SUTENT [Suspect]
     Active Substance: SUNITINIB MALATE
     Indication: RENAL CELL CARCINOMA
     Dosage: 50 MG, CYCLIC (ONCE A DAY; 2 WEEKS ON, 1 WEEK OFF)
     Route: 048
     Dates: start: 20180212, end: 20180402

REACTIONS (18)
  - Dehydration [Recovered/Resolved]
  - Fall [Unknown]
  - Ankle fracture [Unknown]
  - Rash pruritic [Recovering/Resolving]
  - Skin exfoliation [Unknown]
  - Blister [Unknown]
  - Therapeutic response unexpected [Unknown]
  - Alopecia [Unknown]
  - Diarrhoea [Recovered/Resolved]
  - Full blood count decreased [Recovered/Resolved]
  - Hypoglycaemia [Recovering/Resolving]
  - Glossodynia [Unknown]
  - Tongue pruritus [Unknown]
  - Blood pressure normal [Unknown]
  - Sepsis [Recovered/Resolved]
  - Vomiting [Unknown]
  - Stomatitis [Recovered/Resolved]
  - Fatigue [Recovered/Resolved]

NARRATIVE: CASE EVENT DATE: 2018
